FAERS Safety Report 10647368 (Version 3)
Quarter: 2015Q4

REPORT INFORMATION
  Report Type: Report from Study
  Country: JP (occurrence: JP)
  Receive Date: 20141211
  Receipt Date: 20151001
  Transmission Date: 20160304
  Serious: Yes (Life-Threatening, Hospitalization)
  Sender: FDA-Public Use
  Company Number: JP-SA-2014SA155202

PATIENT
  Age: 24 Month
  Sex: Female
  Weight: 10.8 kg

DRUGS (40)
  1. THYMOGLOBULINE [Suspect]
     Active Substance: LAPINE T-LYMPHOCYTE IMMUNE GLOBULIN
     Indication: BONE MARROW CONDITIONING REGIMEN
     Route: 042
     Dates: start: 20090509, end: 20090512
  2. URSO [Concomitant]
     Active Substance: URSODIOL
     Indication: PROPHYLAXIS
     Dates: start: 20090508, end: 20090617
  3. MEYLON [Concomitant]
     Active Substance: SODIUM BICARBONATE
     Indication: FLUID REPLACEMENT
     Dates: start: 20090509, end: 20090513
  4. SOLU-MEDROL [Concomitant]
     Active Substance: METHYLPREDNISOLONE SODIUM SUCCINATE
     Indication: ALLERGY PROPHYLAXIS
     Dates: start: 20090509, end: 20090513
  5. ACIROVEC [Concomitant]
     Active Substance: ACYCLOVIR
     Indication: ANTIVIRAL PROPHYLAXIS
     Dates: start: 20090515, end: 20090608
  6. PERDIPINE [Concomitant]
     Active Substance: NICARDIPINE HYDROCHLORIDE
     Indication: HYPERTENSION
     Dates: start: 20090515, end: 20090515
  7. POLYMYXIN B. [Concomitant]
     Active Substance: POLYMYXIN B
     Indication: PROPHYLAXIS
     Dates: start: 20090508, end: 20090509
  8. BERACHIN [Concomitant]
     Indication: COUGH
     Dates: start: 20090605, end: 20090806
  9. NEORAL [Concomitant]
     Active Substance: CYCLOSPORINE
     Indication: PROPHYLAXIS AGAINST GRAFT VERSUS HOST DISEASE
     Dates: start: 20090612, end: 20090731
  10. MAGNESIUM OXIDE. [Concomitant]
     Active Substance: MAGNESIUM OXIDE
     Indication: HYPOMAGNESAEMIA
     Dates: start: 20090622, end: 20090806
  11. POLARAMINE [Concomitant]
     Active Substance: DEXCHLORPHENIRAMINE MALEATE
     Indication: ALLERGY PROPHYLAXIS
     Dates: start: 20090509, end: 20090518
  12. ROCEPHIN [Concomitant]
     Active Substance: CEFTRIAXONE SODIUM
     Indication: FEBRILE NEUTROPENIA
     Dates: start: 20090510, end: 20090510
  13. FLUCONAZOLE. [Concomitant]
     Active Substance: FLUCONAZOLE
     Indication: ANTIFUNGAL PROPHYLAXIS
     Dates: start: 20090511, end: 20090607
  14. IMMUNOGLOBULIN HUMAN NORMAL [Concomitant]
     Active Substance: HUMAN IMMUNOGLOBULIN G
     Indication: HYPOGAMMAGLOBULINAEMIA
     Dates: start: 20090515, end: 20090530
  15. METHOTREXATE [Concomitant]
     Active Substance: METHOTREXATE
     Indication: PROPHYLAXIS AGAINST GRAFT VERSUS HOST DISEASE
     Dates: start: 20090515, end: 20090520
  16. AMPICILLIN SODIUM/SULBACTAM SODIUM [Concomitant]
     Indication: FEBRILE NEUTROPENIA
     Dates: start: 20090516, end: 20090526
  17. KYTRIL [Concomitant]
     Active Substance: GRANISETRON HYDROCHLORIDE
     Dates: start: 20090509, end: 20090512
  18. ZOVIRAX [Concomitant]
     Active Substance: ACYCLOVIR
     Indication: ANTIVIRAL PROPHYLAXIS
     Dates: start: 20090608
  19. GRAN [Concomitant]
     Active Substance: FILGRASTIM
     Dates: start: 20090519, end: 20090530
  20. TARGOCID [Concomitant]
     Active Substance: TEICOPLANIN
     Indication: BACTERAEMIA
     Dates: start: 20090804, end: 20090805
  21. FLUCONAZOLE. [Concomitant]
     Active Substance: FLUCONAZOLE
     Indication: ANTIFUNGAL PROPHYLAXIS
     Dates: start: 20090508
  22. MUCOSAL [Concomitant]
     Indication: COUGH
     Dates: start: 20090605, end: 20090808
  23. UROMITEXAN [Concomitant]
     Active Substance: MESNA
     Indication: PROPHYLAXIS
     Dates: start: 20090509, end: 20090512
  24. ATARAX-P [Concomitant]
     Active Substance: HYDROXYZINE HYDROCHLORIDE
     Indication: PROPHYLAXIS
     Dates: start: 20090511, end: 20090514
  25. SOLU-MEDROL [Concomitant]
     Active Substance: METHYLPREDNISOLONE SODIUM SUCCINATE
     Indication: PROPHYLAXIS
     Dates: start: 20090509, end: 20090513
  26. BACTRAMIN [Concomitant]
     Active Substance: SULFAMETHOXAZOLE\TRIMETHOPRIM
     Indication: ANTIFUNGAL PROPHYLAXIS
     Dates: start: 20090508
  27. SEPAMIT [Concomitant]
     Indication: HYPERTENSION
     Dates: start: 20090509, end: 20090611
  28. POLARAMINE [Concomitant]
     Active Substance: DEXCHLORPHENIRAMINE MALEATE
     Indication: PROPHYLAXIS
     Dates: start: 20090509, end: 20090518
  29. TAGAMET [Concomitant]
     Active Substance: CIMETIDINE
     Indication: PROPHYLAXIS AGAINST GASTROINTESTINAL ULCER
     Dates: start: 20090511, end: 20090529
  30. MAXIPIME [Concomitant]
     Active Substance: CEFEPIME HYDROCHLORIDE
     Indication: FEBRILE NEUTROPENIA
     Dates: start: 20090511, end: 20090514
  31. FLUMARIN [Concomitant]
     Active Substance: FLOMOXEF SODIUM
     Indication: FEBRILE NEUTROPENIA
     Dates: start: 20090515, end: 20090518
  32. PANTHENOL/RETINOL/THIAMINE HYDROCHLORIDE/ASCORBIC ACID/ERGOCALCIFEROL/FOLIC ACID/RIBOFLAVIN/NICOTINA [Concomitant]
     Indication: DECREASED APPETITE
     Dates: start: 20090515, end: 20090531
  33. STREPTOCOCCUS FAECALIS [Concomitant]
     Active Substance: STREPTOCOCCUS FAECALIS
     Dates: start: 20090508, end: 20090601
  34. ORGARAN [Concomitant]
     Active Substance: DANAPAROID SODIUM
     Indication: PROPHYLAXIS
     Dates: start: 20090508, end: 20090612
  35. ENDOXAN [Concomitant]
     Active Substance: CYCLOPHOSPHAMIDE
     Indication: PREMEDICATION
     Dates: start: 20090509, end: 20090512
  36. ASPARA POTASSIUM [Concomitant]
     Active Substance: POTASSIUM ASPARTATE
     Indication: FLUID REPLACEMENT
     Dates: start: 20090509, end: 20090513
  37. LASIX [Concomitant]
     Active Substance: FUROSEMIDE
     Indication: POLYURIA
     Dates: start: 20090510, end: 20090529
  38. ATARAX-P [Concomitant]
     Active Substance: HYDROXYZINE HYDROCHLORIDE
     Indication: ALLERGY PROPHYLAXIS
     Dates: start: 20090511, end: 20090514
  39. SANDIMMUN [Concomitant]
     Active Substance: CYCLOSPORINE
     Indication: PROPHYLAXIS AGAINST GRAFT VERSUS HOST DISEASE
     Dates: start: 20090513, end: 20090611
  40. PANSPORIN [Concomitant]
     Active Substance: CEFOTIAM HYDROCHLORIDE
     Indication: BACTERIAL INFECTION
     Dates: start: 20090529, end: 20090529

REACTIONS (16)
  - Vomiting [Recovered/Resolved]
  - Pneumonia [Recovering/Resolving]
  - Bronchiolitis [Recovering/Resolving]
  - Platelet count decreased [Recovered/Resolved]
  - Clostridium difficile colitis [Recovered/Resolved]
  - Lower respiratory tract infection [Recovered/Resolved]
  - Hyperamylasaemia [Recovered/Resolved]
  - Pyrexia [Recovering/Resolving]
  - Hepatic function abnormal [Recovered/Resolved]
  - White blood cell count decreased [Recovered/Resolved]
  - Diarrhoea [Recovered/Resolved]
  - Anaemia [Recovered/Resolved]
  - C-reactive protein increased [Recovered/Resolved]
  - Bacteraemia [Recovered/Resolved]
  - Febrile neutropenia [Recovered/Resolved]
  - Pseudomembranous colitis [Recovered/Resolved]

NARRATIVE: CASE EVENT DATE: 20090509
